FAERS Safety Report 5145666-6 (Version None)
Quarter: 2006Q4

REPORT INFORMATION
  Report Type: 
  Country: None (occurrence: None)
  Receive Date: 20061030
  Receipt Date: 20061023
  Transmission Date: 20070319
  Serious: Yes (Hospitalization, Other)
  Sender: FDA-Public Use
  Company Number: SEWYE085725OCT05

PATIENT
  Age: 12 Year
  Sex: Male

DRUGS (1)
  1. REFACTO [Suspect]
     Indication: FACTOR VIII DEFICIENCY
     Dosage: INTRAVENOUS
     Route: 042
     Dates: start: 20050101

REACTIONS (5)
  - ARTHRALGIA [None]
  - COAGULATION FACTOR VIII LEVEL DECREASED [None]
  - DRUG RESISTANCE [None]
  - FACTOR VIII INHIBITION [None]
  - RETROPERITONEAL HAEMATOMA [None]
